FAERS Safety Report 10009650 (Version 2)
Quarter: 2014Q1

REPORT INFORMATION
  Report Type: Spontaneous
  Country: US (occurrence: US)
  Receive Date: 20140312
  Receipt Date: 20140312
  Transmission Date: 20141002
  Serious: No
  Sender: FDA-Public Use
  Company Number: US-INCYTE CORPORATION-2012IN002155

PATIENT
  Age: 75 Year
  Sex: Female

DRUGS (5)
  1. JAKAFI [Suspect]
     Indication: POLYCYTHAEMIA
     Dosage: 10 MG, BID
     Route: 048
     Dates: start: 20121008
  2. JAKAFI [Suspect]
     Indication: MYELOPROLIFERATIVE DISORDER
  3. VALACICLOVIR [Concomitant]
     Dosage: UNK MG, UNK
  4. SYNTHROID [Concomitant]
     Dosage: UNK
  5. FOLIC ACID [Concomitant]
     Dosage: UNK

REACTIONS (3)
  - Flatulence [Not Recovered/Not Resolved]
  - Stomatitis [Not Recovered/Not Resolved]
  - Dizziness [Not Recovered/Not Resolved]
